FAERS Safety Report 4342291-1 (Version None)
Quarter: 2004Q2

REPORT INFORMATION
  Report Type: 
  Country: None (occurrence: None)
  Receive Date: 20040415
  Receipt Date: 20040331
  Transmission Date: 20050107
  Serious: Yes (Other)
  Sender: FDA-Public Use
  Company Number: 205623

PATIENT
  Age: 14 Year
  Sex: Male
  Weight: 48.2 kg

DRUGS (1)
  1. NUTROPIN [Suspect]
     Indication: BODY HEIGHT BELOW NORMAL
     Dosage: 6/WEEK
     Dates: start: 20030606, end: 20040331

REACTIONS (1)
  - PELVIC FRACTURE [None]
